FAERS Safety Report 8616248-6 (Version None)
Quarter: 2012Q3

REPORT INFORMATION
  Report Type: 
  Country: None (occurrence: None)
  Receive Date: 20120823
  Receipt Date: 20120810
  Transmission Date: 20120928
  Serious: Yes (Hospitalization, Other)
  Sender: FDA-Public Use
  Company Number: US-ROCHE-1101070

PATIENT
  Sex: Female
  Weight: 104.42 kg

DRUGS (2)
  1. ZELBORAF [Suspect]
     Indication: METASTATIC MALIGNANT MELANOMA
     Dosage: 4 TABLETS
     Route: 048
     Dates: start: 20120305
  2. ATARAX [Concomitant]
     Indication: SKIN REACTION
     Route: 048

REACTIONS (11)
  - ERYTHEMA [None]
  - DERMAL CYST [None]
  - CELLULITIS [None]
  - SKIN OEDEMA [None]
  - LACRIMATION INCREASED [None]
  - SKIN PAPILLOMA [None]
  - STOMATITIS [None]
  - OCULAR HYPERAEMIA [None]
  - VISION BLURRED [None]
  - NEOPLASM SKIN [None]
  - NEUROPATHY PERIPHERAL [None]
